FAERS Safety Report 9437066 (Version 1)
Quarter: 2013Q3

REPORT INFORMATION
  Report Type: Spontaneous
  Country: BR (occurrence: BR)
  Receive Date: 20130802
  Receipt Date: 20130802
  Transmission Date: 20140515
  Serious: Yes (Other)
  Sender: FDA-Public Use
  Company Number: BR-PFIZER INC-2013223562

PATIENT
  Age: 59 Year
  Sex: Female

DRUGS (1)
  1. LYRICA [Suspect]
     Indication: FIBROMYALGIA
     Dosage: 150 MG (TWO TABLETS OF 75MG), DAILY
     Route: 048
     Dates: start: 20090730

REACTIONS (1)
  - Lip and/or oral cavity cancer [Unknown]
